FAERS Safety Report 7298188-0 (Version None)
Quarter: 2011Q1

REPORT INFORMATION
  Report Type: 
  Country: None (occurrence: None)
  Receive Date: 20110201
  Receipt Date: 20110124
  Transmission Date: 20110831
  Serious: No
  Sender: FDA-Public Use
  Company Number: WSDF_00732

PATIENT
  Sex: Male

DRUGS (1)
  1. WINRHO SDF LIQUID [Suspect]
     Indication: IDIOPATHIC THROMBOCYTOPENIC PURPURA
     Dosage: (INTRAVENOUS (NOT OTHERWISE SPECIFIED))
     Route: 042
     Dates: start: 20080513, end: 20080513

REACTIONS (8)
  - MARROW HYPERPLASIA [None]
  - INFUSION SITE EXTRAVASATION [None]
  - HAEMATOCRIT DECREASED [None]
  - HAEMOLYSIS [None]
  - RED BLOOD CELL COUNT DECREASED [None]
  - PLATELET COUNT DECREASED [None]
  - HAEMOGLOBIN DECREASED [None]
  - DRUG INEFFECTIVE [None]
